FAERS Safety Report 17862777 (Version 4)
Quarter: 2020Q2

REPORT INFORMATION
  Report Type: Spontaneous
  Country: US (occurrence: US)
  Receive Date: 20200605
  Receipt Date: 20200621
  Transmission Date: 20200714
  Serious: No
  Sender: FDA-Public Use
  Company Number: US-AMGEN-USASP2020086225

PATIENT
  Age: 82 Year
  Sex: Male
  Weight: 108.84 kg

DRUGS (1)
  1. NEULASTA [Suspect]
     Active Substance: PEGFILGRASTIM
     Indication: NEUTROPENIA
     Dosage: UNK
     Route: 065

REACTIONS (2)
  - Device use error [Unknown]
  - Device issue [Unknown]

NARRATIVE: CASE EVENT DATE: 20200526
